FAERS Safety Report 9008302 (Version 2)
Quarter: 2013Q1

REPORT INFORMATION
  Report Type: Spontaneous
  Country: AU (occurrence: AU)
  Receive Date: 20130111
  Receipt Date: 20130124
  Transmission Date: 20140127
  Serious: Yes (Life-Threatening, Hospitalization, Other)
  Sender: FDA-Public Use
  Company Number: PHHY2013AU002281

PATIENT
  Age: 43 Year
  Sex: Male
  Weight: 78 kg

DRUGS (4)
  1. EXJADE [Suspect]
     Indication: IRON OVERLOAD
     Dosage: 2.5 G, DAILY
     Route: 048
     Dates: start: 2006, end: 20130102
  2. METFORMIN [Concomitant]
     Indication: DIABETES MELLITUS
     Dosage: 500 MG DAILY, NOCTE
     Route: 048
  3. AMOXICILLIN [Concomitant]
     Indication: SPLENECTOMY
     Dosage: 250 MG, DAILY
     Route: 048
  4. COLECALCIFEROL [Concomitant]
     Indication: VITAMIN D DEFICIENCY
     Dosage: 1000 U, DAILY
     Route: 048

REACTIONS (2)
  - Acute myeloid leukaemia [Unknown]
  - Thrombocytopenia [Unknown]
